FAERS Safety Report 25186369 (Version 2)
Quarter: 2025Q2

REPORT INFORMATION
  Report Type: Report from Study
  Country: US (occurrence: US)
  Receive Date: 20250410
  Receipt Date: 20250427
  Transmission Date: 20250717
  Serious: No
  Sender: ABBVIE
  Company Number: US-ABBVIE-6212811

PATIENT
  Age: 96 Year
  Sex: Male
  Weight: 73.028 kg

DRUGS (2)
  1. SKYRIZI [Suspect]
     Active Substance: RISANKIZUMAB-RZAA
     Indication: Psoriasis
     Route: 058
     Dates: start: 2023
  2. SKYRIZI [Suspect]
     Active Substance: RISANKIZUMAB-RZAA
     Route: 058
     Dates: start: 2024

REACTIONS (3)
  - Cardiac failure congestive [Not Recovered/Not Resolved]
  - Peripheral swelling [Recovering/Resolving]
  - Loss of personal independence in daily activities [Recovered/Resolved]

NARRATIVE: CASE EVENT DATE: 20250201
